FAERS Safety Report 4852376-9 (Version None)
Quarter: 2005Q4

REPORT INFORMATION
  Report Type: 
  Country: None (occurrence: None)
  Receive Date: 20051213
  Receipt Date: 20051202
  Transmission Date: 20060501
  Serious: Yes (Hospitalization)
  Sender: FDA-Public Use
  Company Number: BR-JNJFOC-20051200393

PATIENT
  Age: 4 Year
  Sex: Female
  Weight: 20 kg

DRUGS (1)
  1. HALDOL [Suspect]
     Indication: DRUG USE FOR UNKNOWN INDICATION
     Dosage: INGESTED 3 TABLETS (UNSPECIFIED DOSE)
     Route: 048

REACTIONS (7)
  - ACCIDENTAL EXPOSURE [None]
  - COMA [None]
  - DRUG ADMINISTRATION ERROR [None]
  - EXTRAPYRAMIDAL DISORDER [None]
  - LOSS OF CONSCIOUSNESS [None]
  - OVERDOSE [None]
  - SOPOR [None]
